FAERS Safety Report 11652542 (Version 1)
Quarter: 2015Q4

REPORT INFORMATION
  Report Type: Spontaneous
  Country: CN (occurrence: CN)
  Receive Date: 20151022
  Receipt Date: 20151022
  Transmission Date: 20160304
  Serious: Yes (Hospitalization)
  Sender: FDA-Public Use
  Company Number: CN-PFIZER INC-2015357269

PATIENT
  Age: 82 Year
  Sex: Male
  Weight: 62 kg

DRUGS (3)
  1. YI QI KANG [Suspect]
     Active Substance: ITRACONAZOLE
     Indication: BRONCHITIS
     Dosage: 0.2 G, 1X/DAY
     Route: 048
     Dates: start: 20150416, end: 20150420
  2. FLUCONAZOLE. [Suspect]
     Active Substance: FLUCONAZOLE
     Dosage: 0.2 G, 1X/DAY
     Route: 041
     Dates: start: 20150409, end: 20150416
  3. FLUCONAZOLE. [Suspect]
     Active Substance: FLUCONAZOLE
     Indication: BRONCHITIS
     Dosage: 0.2 G, 1X/DAY
     Route: 041
     Dates: start: 20150405, end: 20150409

REACTIONS (3)
  - Leukopenia [Recovering/Resolving]
  - Lymphocytosis [Recovering/Resolving]
  - Pyrexia [Recovering/Resolving]

NARRATIVE: CASE EVENT DATE: 20150418
